FAERS Safety Report 10792899 (Version 3)
Quarter: 2015Q2

REPORT INFORMATION
  Report Type: Report from Study
  Country: TW (occurrence: TW)
  Receive Date: 20150213
  Receipt Date: 20150408
  Transmission Date: 20150821
  Serious: Yes (Hospitalization, Other)
  Sender: FDA-Public Use
  Company Number: TW-ABBVIE-15K-153-1345604-00

PATIENT
  Age: 74 Year
  Sex: Female
  Weight: 67.5 kg

DRUGS (2)
  1. NORVASC [Concomitant]
     Active Substance: AMLODIPINE BESYLATE
     Indication: HYPERTENSION
     Dates: start: 20110602, end: 20150326
  2. HUMIRA [Suspect]
     Active Substance: ADALIMUMAB
     Indication: RHEUMATOID ARTHRITIS
     Route: 058
     Dates: start: 20110602

REACTIONS (10)
  - Oedema peripheral [Recovering/Resolving]
  - Haematocrit decreased [Unknown]
  - Blood albumin decreased [Unknown]
  - Cough [Recovering/Resolving]
  - Ascites [Recovered/Resolved]
  - Hepatic cirrhosis [Unknown]
  - Tricuspid valve incompetence [Unknown]
  - Portal hypertension [Unknown]
  - Blood uric acid increased [Unknown]
  - Pulmonary hypertension [Unknown]

NARRATIVE: CASE EVENT DATE: 20150207
